FAERS Safety Report 7288080-X (Version None)
Quarter: 2011Q1

REPORT INFORMATION
  Report Type: 
  Country: None (occurrence: None)
  Receive Date: 20110207
  Receipt Date: 20110207
  Transmission Date: 20110831
  Serious: Yes (Other)
  Sender: FDA-Public Use
  Company Number: None

PATIENT
  Age: 53 Year
  Sex: Male
  Weight: 113.3993 kg

DRUGS (2)
  1. SIMVASTATIN [Suspect]
     Indication: BLOOD CHOLESTEROL INCREASED
     Dosage: 10 MG DAILE PO
     Route: 048
     Dates: start: 20110128, end: 20110203
  2. SIMVASTATIN [Suspect]
     Indication: HYPERLIPIDAEMIA
     Dosage: 10 MG DAILE PO
     Route: 048
     Dates: start: 20110128, end: 20110203

REACTIONS (10)
  - ARTHRALGIA [None]
  - ASTHENIA [None]
  - OEDEMA PERIPHERAL [None]
  - CONTUSION [None]
  - MUSCLE SPASMS [None]
  - FATIGUE [None]
  - MYALGIA [None]
  - PYREXIA [None]
  - VEIN PAIN [None]
  - HEADACHE [None]
